FAERS Safety Report 4785309-4 (Version None)
Quarter: 2005Q3

REPORT INFORMATION
  Report Type: 
  Country: None (occurrence: None)
  Receive Date: 20050929
  Receipt Date: 20050913
  Transmission Date: 20060218
  Serious: Yes (Hospitalization, Congenital Anomaly, Other)
  Sender: FDA-Public Use
  Company Number: JP-JNJFOC-20050502966

PATIENT
  Age: 1 Day
  Sex: Male
  Weight: 3.4 kg

DRUGS (11)
  1. RISPERDAL [Suspect]
     Indication: DRUG EXPOSURE DURING PREGNANCY
     Dosage: 2 MG, IN 1 DAY, ORAL
     Route: 048
     Dates: start: 20000912
  2. RISPERDAL [Suspect]
     Indication: MATERNAL DRUGS AFFECTING FOETUS
     Dosage: 2 MG, IN 1 DAY, ORAL
     Route: 048
     Dates: start: 20000912
  3. HALOPERIDOL [Suspect]
     Indication: MATERNAL DRUGS AFFECTING FOETUS
     Dosage: 5MG, IN 1 DAY, INTRAMUSCULAR
     Route: 030
     Dates: start: 20000907, end: 20000907
  4. HALOPERIDOL [Suspect]
     Dosage: 4.5 MG, IN 1 DAY, ORAL
     Route: 048
     Dates: start: 20000907, end: 20000911
  5. BIPERIDEN HYDROCHLORIDE (BIPERIDEN HYDROCHLORIDE) TABLETS [Suspect]
     Dosage: 3 MG, IN 1 DAY, ORAL
     Route: 048
     Dates: start: 20000907
  6. CHLORPROMAZINE-PROMETHAZINE (CHLORPROMAZINE) TABLETS [Suspect]
     Dosage: 1 DOSE (S), IN 1 DAY, ORAL
     Route: 048
     Dates: end: 20000906
  7. ESTAZOLAM (ESTAZOLAM) TABLETS [Suspect]
     Dosage: 2 MG, IN 1 DAY, ORAL
     Route: 048
     Dates: end: 20000906
  8. CHLORPROMAZINE HIBENZATE (CHLORPROMAZINE) TABLETS [Suspect]
     Dosage: 25 MG, IN 1 DAY, ORAL
     Route: 048
     Dates: start: 20000907
  9. BROTIZOLAM (BROTIZOLAM) TABLETS [Suspect]
     Dosage: 0.5 MG, IN 1 DAY, ORAL
     Route: 048
     Dates: start: 20000907, end: 20000911
  10. NITRAZEPAM [Suspect]
     Dosage: 10 MG, IN 1 DAY, ORAL
     Route: 048
     Dates: start: 20000912
  11. FLUPHENAZINE ENANTHATE (FLUPHENAZINE ENANTATE) INJECTION [Suspect]
     Dosage: 25 MG, IN 1 DAY, INTRA-MUSCULAR
     Route: 030
     Dates: start: 20000907, end: 20000907

REACTIONS (7)
  - CAESAREAN SECTION [None]
  - CONGENITAL ANOMALY [None]
  - DRUG EXPOSURE DURING PREGNANCY [None]
  - INCUBATOR THERAPY [None]
  - OXYGEN SATURATION DECREASED [None]
  - PATENT DUCTUS ARTERIOSUS [None]
  - PNEUMOTHORAX [None]
